FAERS Safety Report 21854812 (Version 3)
Quarter: 2023Q2

REPORT INFORMATION
  Report Type: Spontaneous
  Country: US (occurrence: US)
  Receive Date: 20230112
  Receipt Date: 20230403
  Transmission Date: 20230721
  Serious: Yes (Hospitalization)
  Sender: FDA-Public Use
  Company Number: US-BRISTOL-MYERS SQUIBB COMPANY-2023-005078

PATIENT
  Age: 88 Year
  Sex: Male
  Weight: 76 kg

DRUGS (26)
  1. ELIQUIS [Suspect]
     Active Substance: APIXABAN
     Indication: Cerebrovascular accident prophylaxis
     Dates: end: 20221229
  2. ELIQUIS [Suspect]
     Active Substance: APIXABAN
     Dates: end: 20230108
  3. ELIQUIS [Suspect]
     Active Substance: APIXABAN
     Dates: start: 20220901
  4. ELIQUIS [Suspect]
     Active Substance: APIXABAN
     Dates: start: 202207, end: 20221228
  5. ELIQUIS [Suspect]
     Active Substance: APIXABAN
     Dates: start: 20230202, end: 20230210
  6. ELIQUIS [Suspect]
     Active Substance: APIXABAN
     Dates: end: 20220823
  7. VYNDAMAX [Suspect]
     Active Substance: TAFAMIDIS
     Indication: Amyloidosis
     Dosage: TAKES A 61 CAPSULE ONCE A DAY IN MORNING. DOES NOT ?KNOW DOSAGE UNITS OF 61.
     Dates: start: 2022, end: 20230210
  8. TORSEMIDE [Concomitant]
     Active Substance: TORSEMIDE
     Indication: Diuretic therapy
     Dates: start: 20220722, end: 20230210
  9. OMEPRAZOLE [Concomitant]
     Active Substance: OMEPRAZOLE
     Indication: Product used for unknown indication
     Dates: start: 201505, end: 20230210
  10. PRAVASTATIN [Concomitant]
     Active Substance: PRAVASTATIN
     Indication: Product used for unknown indication
     Dates: start: 20220822, end: 20230210
  11. CEPHALEXIN [Concomitant]
     Active Substance: CEPHALEXIN
     Indication: Infection prophylaxis
     Dates: start: 20230104, end: 20230111
  12. PEPCID [Concomitant]
     Active Substance: FAMOTIDINE
     Indication: Product used for unknown indication
     Dates: start: 201201
  13. PEPCID [Concomitant]
     Active Substance: FAMOTIDINE
     Dates: start: 2017, end: 20230210
  14. STOOL SOFTENER (DOCUSATE) [Concomitant]
     Active Substance: DOCUSATE
     Indication: Product used for unknown indication
  15. POTASSIUM [Concomitant]
     Active Substance: POTASSIUM
     Indication: Product used for unknown indication
     Dates: start: 20220914, end: 20230210
  16. FARXIGA [Concomitant]
     Active Substance: DAPAGLIFLOZIN PROPANEDIOL
     Indication: Product used for unknown indication
     Dates: start: 201509, end: 20221205
  17. FARXIGA [Concomitant]
     Active Substance: DAPAGLIFLOZIN PROPANEDIOL
     Dates: start: 20220915, end: 20221206
  18. METOPROLOL [Concomitant]
     Active Substance: METOPROLOL
     Indication: Blood pressure decreased
     Dates: start: 20220722, end: 20230210
  19. DOCUSATE SODIUM [Concomitant]
     Active Substance: DOCUSATE SODIUM
     Indication: Product used for unknown indication
     Dates: start: 20220722, end: 20230210
  20. DULCOLAX (BISACODYL) [Concomitant]
     Active Substance: BISACODYL
     Indication: Product used for unknown indication
     Dates: start: 20220822, end: 20230210
  21. AMIODARONE [Concomitant]
     Active Substance: AMIODARONE
     Indication: Product used for unknown indication
     Dates: start: 20220722, end: 20221012
  22. SIMVASTATIN [Concomitant]
     Active Substance: SIMVASTATIN
     Indication: Product used for unknown indication
     Dates: start: 2015, end: 20220822
  23. FAMOTIDINE [Concomitant]
     Active Substance: FAMOTIDINE
     Indication: Product used for unknown indication
     Dates: start: 2017, end: 20230210
  24. VITAMIN D3 [Concomitant]
     Active Substance: CHOLECALCIFEROL
     Indication: Product used for unknown indication
     Dates: start: 20220722, end: 20230210
  25. MINERALS\VITAMINS [Concomitant]
     Active Substance: MINERALS\VITAMINS
     Indication: Product used for unknown indication
     Dates: start: 2020, end: 20230210
  26. VITAMIN B-COMPLEX [Concomitant]
     Active Substance: DEXPANTHENOL\NIACINAMIDE\PYRIDOXINE HYDROCHLORIDE\RIBOFLAVIN 5^-PHOSPHATE SODIUM\THIAMINE HYDROCHLOR
     Indication: Product used for unknown indication
     Dates: start: 2020, end: 20230210

REACTIONS (5)
  - Epistaxis [Recovered/Resolved]
  - Intentional product use issue [Unknown]
  - Off label use [Unknown]
  - Blood urine present [Recovered/Resolved]
  - Anaemia [Unknown]

NARRATIVE: CASE EVENT DATE: 20220801
